FAERS Safety Report 6491694-8 (Version None)
Quarter: 2009Q4

REPORT INFORMATION
  Report Type: 
  Country: None (occurrence: None)
  Receive Date: 20091211
  Receipt Date: 20091203
  Transmission Date: 20100525
  Serious: Yes (Death, Hospitalization)
  Sender: FDA-Public Use
  Company Number: US-ROCHE-670605

PATIENT
  Sex: Male
  Weight: 51 kg

DRUGS (12)
  1. BEVACIZUMAB [Suspect]
     Indication: HEAD AND NECK CANCER
     Dosage: 15 MG/KG, UNK
     Route: 042
     Dates: start: 20090407, end: 20091103
  2. FENTANYL-100 [Concomitant]
     Indication: DRUG USE FOR UNKNOWN INDICATION
  3. ROXICET [Concomitant]
     Indication: DRUG USE FOR UNKNOWN INDICATION
  4. OXYCODONE [Concomitant]
     Indication: DRUG USE FOR UNKNOWN INDICATION
  5. COLACE [Concomitant]
     Indication: DRUG USE FOR UNKNOWN INDICATION
  6. MAGIC SWIZZLE (ALUMINIUM HYDROXIDE/DIPHENHYDRAMINE HYDROCHLORIDE/LIDO+ [Concomitant]
     Indication: DRUG USE FOR UNKNOWN INDICATION
  7. NEXIUM [Concomitant]
     Indication: DRUG USE FOR UNKNOWN INDICATION
  8. TYLENOL (CAPLET) [Concomitant]
     Indication: DRUG USE FOR UNKNOWN INDICATION
  9. AUGMENTIN [Concomitant]
     Indication: DRUG USE FOR UNKNOWN INDICATION
  10. CIPROFLOXACIN [Concomitant]
     Indication: DRUG USE FOR UNKNOWN INDICATION
  11. MORPHINE SULFATE [Concomitant]
     Indication: DRUG USE FOR UNKNOWN INDICATION
     Dosage: REPORTED AS: KADIAN
  12. VANCOMYCIN [Concomitant]
     Indication: DRUG USE FOR UNKNOWN INDICATION

REACTIONS (2)
  - DEATH [None]
  - PNEUMONIA ASPIRATION [None]
